FAERS Safety Report 14235415 (Version 1)
Quarter: 2017Q4

REPORT INFORMATION
  Report Type: Spontaneous
  Country: BR (occurrence: BR)
  Receive Date: 20171129
  Receipt Date: 20171129
  Transmission Date: 20180321
  Serious: Yes (Other)
  Sender: FDA-Public Use
  Company Number: BR-ABBVIE-17K-020-2175866-00

PATIENT
  Sex: Female

DRUGS (4)
  1. REMICADE [Suspect]
     Active Substance: INFLIXIMAB
     Route: 065
  2. HUMIRA [Suspect]
     Active Substance: ADALIMUMAB
     Route: 058
  3. HUMIRA [Suspect]
     Active Substance: ADALIMUMAB
     Indication: CROHN^S DISEASE
     Route: 058
  4. REMICADE [Suspect]
     Active Substance: INFLIXIMAB
     Indication: CROHN^S DISEASE
     Route: 065

REACTIONS (12)
  - Exposure during pregnancy [Unknown]
  - Live birth [Unknown]
  - Somnolence [Unknown]
  - Skin injury [Recovered/Resolved]
  - Nausea [Unknown]
  - Injection site pain [Unknown]
  - Crohn^s disease [Recovered/Resolved]
  - Adverse event [Unknown]
  - Autoimmune hepatitis [Not Recovered/Not Resolved]
  - Malaise [Unknown]
  - Dermatitis allergic [Recovered/Resolved]
  - Crohn^s disease [Unknown]
